FAERS Safety Report 7559647-6 (Version None)
Quarter: 2011Q2

REPORT INFORMATION
  Report Type: 
  Country: None (occurrence: None)
  Receive Date: 20110621
  Receipt Date: 20110613
  Transmission Date: 20111010
  Serious: Yes (Other)
  Sender: FDA-Public Use
  Company Number: US-ASTRAZENECA-2011SE17660

PATIENT
  Age: 586 Month
  Sex: Female
  Weight: 72.6 kg

DRUGS (10)
  1. SEROQUEL [Suspect]
     Indication: BIPOLAR DISORDER
     Route: 048
  2. ABILIFY [Concomitant]
  3. DIAZEPAM [Concomitant]
  4. ZERTEC [Concomitant]
     Indication: SEASONAL ALLERGY
  5. TRAZODONE HCL [Concomitant]
  6. FLEXERIL [Concomitant]
  7. PROAIR HFA [Concomitant]
  8. ALBUTEROL SULFATE AUTOHALER [Concomitant]
  9. ESTRIDIOL [Concomitant]
  10. SYMBICORT [Suspect]
     Indication: ASTHMA
     Dosage: 160 MCG TWO PUFFS TWICE A DAY
     Route: 055
     Dates: start: 20101201

REACTIONS (15)
  - SPINAL DISORDER [None]
  - FALL [None]
  - DISTURBANCE IN ATTENTION [None]
  - INCORRECT DOSE ADMINISTERED [None]
  - DRY MOUTH [None]
  - DRUG DOSE OMISSION [None]
  - JOINT SPRAIN [None]
  - FOOT FRACTURE [None]
  - THIRST [None]
  - DYSPNOEA [None]
  - DRY THROAT [None]
  - HYPOACUSIS [None]
  - WHEEZING [None]
  - UPPER-AIRWAY COUGH SYNDROME [None]
  - INAPPROPRIATE SCHEDULE OF DRUG ADMINISTRATION [None]
